FAERS Safety Report 23445671 (Version 1)
Quarter: 2024Q1

REPORT INFORMATION
  Report Type: Spontaneous
  Country: US (occurrence: US)
  Receive Date: 20240126
  Receipt Date: 20240126
  Transmission Date: 20240410
  Serious: Yes (Hospitalization, Other)
  Sender: FDA-Public Use
  Company Number: US-EPICPHARMA-US-2024EPCLIT00130

PATIENT
  Age: 22 Year
  Sex: Male

DRUGS (1)
  1. HALOPERIDOL LACTATE [Suspect]
     Active Substance: HALOPERIDOL LACTATE
     Indication: Alcohol poisoning
     Route: 030

REACTIONS (3)
  - Wolff-Parkinson-White syndrome [Recovered/Resolved]
  - Unmasking of previously unidentified disease [Unknown]
  - Product use in unapproved indication [Unknown]
